FAERS Safety Report 4377945-4 (Version None)
Quarter: 2004Q2

REPORT INFORMATION
  Report Type: 
  Country: None (occurrence: None)
  Receive Date: 20040601
  Receipt Date: 20040218
  Transmission Date: 20050107
  Serious: No
  Sender: FDA-Public Use
  Company Number: WAES 0402USA01473

PATIENT
  Age: 59 Year
  Sex: Male
  Weight: 125.1928 kg

DRUGS (11)
  1. ZETIA [Suspect]
     Indication: HYPERCHOLESTEROLAEMIA
     Dosage: 10MG, DAILY; PO
     Route: 048
     Dates: start: 20031112, end: 20040212
  2. ZETIA [Suspect]
     Indication: LIPIDS
     Dosage: 10MG, DAILY; PO
     Route: 048
     Dates: start: 20031112, end: 20040212
  3. ALDACTONE [Concomitant]
  4. HYDRODIURIL [Concomitant]
  5. PRINIVIL [Concomitant]
  6. ASPIRIN [Concomitant]
  7. FOLIC ACID [Concomitant]
  8. IMIQUIMOD [Concomitant]
  9. METFORMIN HCL [Concomitant]
  10. VITAMIN B (UNSPECIFIED) [Concomitant]
  11. VITAMIN E [Concomitant]

REACTIONS (1)
  - RASH MORBILLIFORM [None]
